FAERS Safety Report 8288980-8 (Version None)
Quarter: 2012Q2

REPORT INFORMATION
  Report Type: 
  Country: None (occurrence: None)
  Receive Date: 20120412
  Receipt Date: 20120330
  Transmission Date: 20120825
  Serious: Yes (Hospitalization, Other)
  Sender: FDA-Public Use
  Company Number: 2012CP000020

PATIENT
  Age: 42 Year
  Sex: Female
  Weight: 42 kg

DRUGS (11)
  1. ACETAMINOPHEN [Suspect]
     Indication: POSTOPERATIVE ANALGESIA
     Dosage: 1 GRAM;1/6 HOURS;IV
     Route: 042
     Dates: start: 20111014
  2. PIPERACILLIN AND TAZOBACTAM [Suspect]
     Indication: ABDOMINAL SEPSIS
     Dosage: 13.5 GRAM;DAY;IV
     Route: 042
     Dates: start: 20111014, end: 20111020
  3. METRONIDAZOLE [Concomitant]
  4. FUROSEMIDE [Concomitant]
  5. TINZAPARIN [Concomitant]
  6. MEROPENEM [Concomitant]
  7. ALBUTEROL [Concomitant]
  8. PENTASA [Concomitant]
  9. OMEPRAZOLE [Concomitant]
  10. POTASSIUM CHLORIDE [Concomitant]
  11. MORPHINE [Concomitant]

REACTIONS (5)
  - COAGULOPATHY [None]
  - OVERDOSE [None]
  - LIVER FUNCTION TEST ABNORMAL [None]
  - GAMMA-GLUTAMYLTRANSFERASE INCREASED [None]
  - BLOOD ALKALINE PHOSPHATASE INCREASED [None]
